FAERS Safety Report 24692019 (Version 1)
Quarter: 2024Q4

REPORT INFORMATION
  Report Type: Spontaneous
  Country: US (occurrence: US)
  Receive Date: 20241203
  Receipt Date: 20241203
  Transmission Date: 20250115
  Serious: No
  Sender: MYLAN
  Company Number: US-MYLANLABS-2024M1104859

PATIENT
  Sex: Female
  Weight: 63.5 kg

DRUGS (7)
  1. FENTANYL TRANSDERMAL SYSTEM [Suspect]
     Active Substance: FENTANYL
     Indication: Pain
     Dosage: 75 MICROGRAM, QH (1 PATCH, EVERY 72 HOURS)
     Route: 062
     Dates: start: 2000
  2. PYRIDOSTIGMINE [Concomitant]
     Active Substance: PYRIDOSTIGMINE
     Indication: Autoimmune eye disorder
     Dosage: UNK
     Route: 065
  3. VESICARE [Concomitant]
     Active Substance: SOLIFENACIN SUCCINATE
     Indication: Autoimmune eye disorder
     Dosage: UNK
     Route: 065
  4. TOPAMAX [Concomitant]
     Active Substance: TOPIRAMATE
     Indication: Autoimmune eye disorder
     Dosage: UNK
     Route: 065
  5. CITALOPRAM [Concomitant]
     Active Substance: CITALOPRAM
     Indication: Autoimmune eye disorder
     Dosage: UNK
     Route: 065
  6. PRILOSEC [Concomitant]
     Active Substance: OMEPRAZOLE MAGNESIUM
     Indication: Autoimmune eye disorder
     Dosage: UNK
     Route: 065
  7. IMIPRAMINE [Concomitant]
     Active Substance: IMIPRAMINE
     Indication: Autoimmune eye disorder
     Dosage: UNK
     Route: 065

REACTIONS (11)
  - Irritability [Unknown]
  - Feeding disorder [Unknown]
  - Tremor [Unknown]
  - Insomnia [Unknown]
  - Feeling cold [Unknown]
  - Feeling hot [Unknown]
  - Diarrhoea [Unknown]
  - Withdrawal syndrome [Unknown]
  - Vomiting [Unknown]
  - Product adhesion issue [Unknown]
  - Wrong technique in device usage process [Unknown]
